FAERS Safety Report 14901200 (Version 1)
Quarter: 2018Q2

REPORT INFORMATION
  Report Type: Spontaneous
  Country: US (occurrence: US)
  Receive Date: 20180516
  Receipt Date: 20180516
  Transmission Date: 20180711
  Serious: Yes (Other)
  Sender: FDA-Public Use
  Company Number: US-PFIZER INC-2018194543

PATIENT
  Age: 63 Year
  Sex: Female

DRUGS (2)
  1. NEURONTIN [Suspect]
     Active Substance: GABAPENTIN
     Indication: FIBROMYALGIA
     Dosage: UNK
  2. NEURONTIN [Suspect]
     Active Substance: GABAPENTIN
     Indication: TRIGEMINAL NEURALGIA
     Dosage: RECENTLY TOOK NEURONTIN FOR 2 WEEKS

REACTIONS (6)
  - Road traffic accident [Unknown]
  - Hypokinesia [Recovered/Resolved]
  - Product use in unapproved indication [Unknown]
  - Spinal fracture [Unknown]
  - Fall [Recovered/Resolved]
  - Dysarthria [Recovered/Resolved]
